FAERS Safety Report 11360143 (Version 2)
Quarter: 2015Q3

REPORT INFORMATION
  Report Type: Spontaneous
  Country: US (occurrence: US)
  Receive Date: 20150810
  Receipt Date: 20150812
  Transmission Date: 20151125
  Serious: No
  Sender: FDA-Public Use
  Company Number: PHEH2015US010587

PATIENT
  Age: 94 Year
  Sex: Female

DRUGS (1)
  1. EXELON PATCH [Suspect]
     Active Substance: RIVASTIGMINE
     Indication: PRODUCT USED FOR UNKNOWN INDICATION
     Dosage: 9.5 MG, QD (PATCH 10)
     Route: 062

REACTIONS (4)
  - Drug intolerance [Unknown]
  - Insomnia [Unknown]
  - Fall [Unknown]
  - Application site erythema [Unknown]

NARRATIVE: CASE EVENT DATE: 20150315
